FAERS Safety Report 4477367-1 (Version None)
Quarter: 2004Q4

REPORT INFORMATION
  Report Type: 
  Country: None (occurrence: None)
  Receive Date: 20041018
  Receipt Date: 20041007
  Transmission Date: 20050328
  Serious: Yes (Hospitalization)
  Sender: FDA-Public Use
  Company Number: IT-JNJFOC-20041002267

PATIENT
  Age: 69 Year
  Sex: Male
  Weight: 72 kg

DRUGS (5)
  1. TRAMADOL HCL [Suspect]
     Dosage: PRESCRIBED DOSE
     Route: 042
  2. TRAMADOL HCL [Suspect]
     Route: 042
  3. CONTRAMAL [Concomitant]
     Route: 049
  4. CONTRAMAL [Concomitant]
     Route: 049
  5. BROMAZEPAM [Concomitant]
     Route: 049

REACTIONS (9)
  - ARRHYTHMIA [None]
  - BRADYPNOEA [None]
  - DEPRESSED LEVEL OF CONSCIOUSNESS [None]
  - INADEQUATE ANALGESIA [None]
  - MEDICATION ERROR [None]
  - MIOSIS [None]
  - RESPIRATORY DEPRESSION [None]
  - SOPOR [None]
  - STUPOR [None]
